FAERS Safety Report 4730476-1 (Version None)
Quarter: 2005Q3

REPORT INFORMATION
  Report Type: 
  Country: None (occurrence: None)
  Receive Date: 20050801
  Receipt Date: 20020124
  Transmission Date: 20060218
  Serious: Yes (Hospitalization)
  Sender: FDA-Public Use
  Company Number: PHBS2002JP01244

PATIENT
  Age: 56 Year
  Sex: Female
  Weight: 52 kg

DRUGS (6)
  1. GLEEVEC [Suspect]
     Dosage: 300 MG/DAY
     Route: 048
     Dates: start: 20011214, end: 20011220
  2. GLEEVEC [Suspect]
     Dosage: 100 MG/DAY
     Dates: start: 20020124
  3. GLEEVEC [Suspect]
     Dosage: 100 MG/DAY
     Dates: start: 20020129
  4. GLEEVEC [Suspect]
     Dosage: 200 MG/DAY
     Dates: start: 20020314
  5. AMLODIN [Concomitant]
  6. MAGNESIUM OXIDE [Concomitant]

REACTIONS (13)
  - CONJUNCTIVITIS [None]
  - ENANTHEMA [None]
  - ERYTHEMA [None]
  - ERYTHEMA MULTIFORME [None]
  - FEELING HOT [None]
  - HEADACHE [None]
  - NEUTROPENIA [None]
  - OCULOMUCOCUTANEOUS SYNDROME [None]
  - PRURITUS [None]
  - PYREXIA [None]
  - RASH [None]
  - URTICARIA GENERALISED [None]
  - WHITE BLOOD CELL COUNT DECREASED [None]
